FAERS Safety Report 17980950 (Version 1)
Quarter: 2020Q3

REPORT INFORMATION
  Report Type: Spontaneous
  Country: PK (occurrence: PK)
  Receive Date: 20200704
  Receipt Date: 20200704
  Transmission Date: 20201103
  Serious: Yes (Death, Hospitalization, Other)
  Sender: FDA-Public Use
  Company Number: PK-AMGEN-PAKSP2020104975

PATIENT

DRUGS (6)
  1. VINCRISTINE [Concomitant]
     Active Substance: VINCRISTINE
     Indication: EWING^S SARCOMA
     Dosage: UNK (EVERY 15 DAYS)
  2. ETOPOSIDE. [Concomitant]
     Active Substance: ETOPOSIDE
     Indication: EWING^S SARCOMA
     Dosage: UNK (EVERY 15 DAYS)
  3. DOXORUBICIN [Concomitant]
     Active Substance: DOXORUBICIN
     Indication: EWING^S SARCOMA
     Dosage: UNK (EVERY 15 DAYS)
  4. CYCLOPHOSPHAMIDE. [Concomitant]
     Active Substance: CYCLOPHOSPHAMIDE
     Indication: EWING^S SARCOMA
     Dosage: UNK (EVERY 15 DAYS)
  5. FILGRASTIM [Suspect]
     Active Substance: FILGRASTIM
     Indication: PRODUCT USED FOR UNKNOWN INDICATION
     Dosage: UNK UNK, AFTER CHEMO
     Route: 065
  6. IFOSFAMIDE. [Concomitant]
     Active Substance: IFOSFAMIDE
     Indication: EWING^S SARCOMA
     Dosage: UNK (EVERY 15 DAYS)

REACTIONS (5)
  - Malignant neoplasm progression [Fatal]
  - Necrosis [Unknown]
  - Sepsis [Fatal]
  - Febrile neutropenia [Unknown]
  - Cardiac failure [Fatal]
